FAERS Safety Report 10019338 (Version 3)
Quarter: 2014Q2

REPORT INFORMATION
  Report Type: Spontaneous
  Country: CA (occurrence: CA)
  Receive Date: 20140318
  Receipt Date: 20140408
  Transmission Date: 20141212
  Serious: Yes (Hospitalization, Other)
  Sender: FDA-Public Use
  Company Number: CA-B.I. PHARMACEUTICALS,INC./RIDGEFIELD-2014-BI-11221CN

PATIENT
  Age: 77 Year
  Sex: Male

DRUGS (2)
  1. PRADAXA [Suspect]
     Indication: ATRIAL FIBRILLATION
     Route: 065
     Dates: start: 2013, end: 20140310
  2. MEDICATION NOT FURTHER SPECIFIED [Concomitant]
     Route: 065

REACTIONS (2)
  - Bladder transitional cell carcinoma [Recovered/Resolved]
  - Blood urine present [Recovered/Resolved]
